FAERS Safety Report 8766642 (Version 1)
Quarter: 2012Q4

REPORT INFORMATION
  Report Type: 
  Country: US (occurrence: US)
  Receive Date: 20120904
  Receipt Date: 20120904
  Transmission Date: 20130627
  Serious: No
  Sender: FDA-Public Use
  Company Number: US-PFIZER INC-2010136487

PATIENT
  Age: 45 Year
  Sex: Female
  Weight: 61.22 kg

DRUGS (5)
  1. CHANTIX [Suspect]
     Indication: SMOKING CESSATION THERAPY
     Dosage: 0.5 mg, daily
     Dates: start: 2010, end: 2010
  2. CHANTIX [Suspect]
     Dosage: 0.5 mg, 2x/day
     Dates: start: 2010, end: 2012
  3. CHANTIX [Suspect]
     Dosage: UNK
     Dates: start: 2010, end: 2010
  4. CHANTIX [Suspect]
     Dosage: 0.5 mg, daily
     Dates: start: 20120829
  5. OXYMORPHONE HYDROCHLORIDE [Concomitant]
     Indication: BACK PAIN
     Dosage: 10 mg, daily
     Dates: start: 2009, end: 2010

REACTIONS (2)
  - Nausea [Recovered/Resolved]
  - Vomiting [Recovered/Resolved]
